FAERS Safety Report 7115603-3 (Version None)
Quarter: 2010Q4

REPORT INFORMATION
  Report Type: 
  Country: None (occurrence: None)
  Receive Date: 20101122
  Receipt Date: 20101109
  Transmission Date: 20110411
  Serious: Yes (Life-Threatening, Hospitalization, Other)
  Sender: FDA-Public Use
  Company Number: CA-ELI_LILLY_AND_COMPANY-CA201011002200

PATIENT
  Sex: Male

DRUGS (12)
  1. ZYPREXA [Suspect]
     Indication: BIPOLAR DISORDER
     Dosage: UNK, DOSE VARIED BETWEEN 10, 15, 20 AND 30MG
     Route: 048
  2. VENLAFAXINE [Concomitant]
     Dosage: UNK, UNKNOWN
     Route: 065
  3. QUETIAPINE [Concomitant]
     Dosage: UNK, UNKNOWN
     Route: 065
  4. MIRTAZAPINE [Concomitant]
     Dosage: UNK, UNKNOWN
     Route: 065
  5. METOPROLOL TARTRATE [Concomitant]
     Dosage: UNK, UNKNOWN
     Route: 065
  6. ZOPICLONE [Concomitant]
     Dosage: UNK, UNKNOWN
     Route: 065
  7. TRAZODONE HCL [Concomitant]
     Dosage: UNK, UNKNOWN
     Route: 065
  8. BENZTROPINE MESYLATE [Concomitant]
     Dosage: UNK, UNKNOWN
     Route: 065
  9. RISPERDAL [Concomitant]
     Dosage: UNK, UNKNOWN
     Route: 065
  10. BUPROPION [Concomitant]
     Dosage: UNK, UNKNOWN
     Route: 065
  11. OXYCODONE HCL AND ACETAMINOPHEN [Concomitant]
     Dosage: UNK, UNKNOWN
     Route: 065
  12. ASPIRIN [Concomitant]

REACTIONS (19)
  - BUNDLE BRANCH BLOCK RIGHT [None]
  - CONJUNCTIVAL HAEMORRHAGE [None]
  - DIABETES MELLITUS [None]
  - HEART RATE INCREASED [None]
  - MYOCARDIAL INFARCTION [None]
  - ORGAN FAILURE [None]
  - OVERDOSE [None]
  - PANCREATITIS [None]
  - PEPTIC ULCER [None]
  - PLATELET COUNT DECREASED [None]
  - PNEUMONIA PNEUMOCOCCAL [None]
  - POLYNEUROPATHY [None]
  - RENAL FAILURE [None]
  - RENAL TUBULAR NECROSIS [None]
  - RESPIRATORY FAILURE [None]
  - SEPTIC SHOCK [None]
  - SKIN ULCER [None]
  - SUPRAVENTRICULAR TACHYCARDIA [None]
  - VENTRICULAR TACHYCARDIA [None]
